FAERS Safety Report 9613174 (Version 2)
Quarter: 2013Q4

REPORT INFORMATION
  Report Type: Spontaneous
  Country: US (occurrence: US)
  Receive Date: 20131010
  Receipt Date: 20131107
  Transmission Date: 20140711
  Serious: Yes (Other)
  Sender: FDA-Public Use
  Company Number: PHEH2013US020888

PATIENT
  Sex: Male

DRUGS (13)
  1. METHYLPHENIDATE [Suspect]
     Indication: COGNITIVE DISORDER
     Dosage: 2 DF, TID
     Route: 048
  2. AMFETAMINE ASP W/AMFET SUL/DEXAM SA/DEXAM SUL [Concomitant]
  3. BACLOFEN [Concomitant]
     Dosage: UNK UKN, UNK
  4. OXCARBAZEPINE [Concomitant]
     Dosage: UNK UKN, UNK
  5. HYDROXYCHLOROQUINE [Concomitant]
     Dosage: UNK UKN, UNK
  6. VIAGRA [Concomitant]
     Dosage: UNK UKN, UNK
  7. CALCIUM [Concomitant]
     Dosage: UNK UKN, UNK
  8. IBUPROFEN [Concomitant]
     Dosage: UNK UKN, UNK
  9. BETASERON [Concomitant]
     Dosage: UNK UKN, UNK
  10. LACTAID [Concomitant]
     Dosage: UNK UKN, UNK
  11. LISINOPRIL [Concomitant]
     Dosage: UNK UKN, UNK
  12. AMLODIPINE [Concomitant]
     Dosage: UNK UKN, UNK
  13. FAMOTIDINE [Concomitant]
     Dosage: UNK UKN, UNK

REACTIONS (11)
  - Road traffic accident [Unknown]
  - Injury [Unknown]
  - Post-traumatic stress disorder [Unknown]
  - Multiple sclerosis [Unknown]
  - Memory impairment [Unknown]
  - Food allergy [Unknown]
  - Muscle spasticity [Unknown]
  - Fatigue [Unknown]
  - Hypersensitivity [Unknown]
  - Body temperature increased [Unknown]
  - Drug ineffective [Unknown]
